FAERS Safety Report 14307566 (Version 1)
Quarter: 2017Q4

REPORT INFORMATION
  Report Type: Spontaneous
  Country: CA (occurrence: CA)
  Receive Date: 20171220
  Receipt Date: 20171220
  Transmission Date: 20180321
  Serious: Yes (Hospitalization, Other)
  Sender: FDA-Public Use
  Company Number: CA-CIPLA LTD.-2017CA23212

PATIENT

DRUGS (2)
  1. BUPROPION. [Interacting]
     Active Substance: BUPROPION
     Dosage: UNK
     Route: 063
  2. ESCITALOPRAM [Suspect]
     Active Substance: ESCITALOPRAM OXALATE
     Dosage: UNK
     Route: 063

REACTIONS (4)
  - Exposure during breast feeding [Unknown]
  - Convulsion neonatal [Recovered/Resolved]
  - Vomiting [Recovered/Resolved]
  - Drug interaction [Unknown]
